FAERS Safety Report 13940203 (Version 2)
Quarter: 2017Q4

REPORT INFORMATION
  Report Type: Spontaneous
  Country: JP (occurrence: JP)
  Receive Date: 20170906
  Receipt Date: 20171116
  Transmission Date: 20180320
  Serious: Yes (Death, Other)
  Sender: FDA-Public Use
  Company Number: JP-009507513-1709JPN000140J

PATIENT
  Age: 69 Year
  Sex: Male
  Weight: 55 kg

DRUGS (5)
  1. MORPHINE HYDROCHLORIDE HYDRATE [Concomitant]
     Active Substance: MORPHINE HYDROCHLORIDE
     Indication: LUNG ADENOCARCINOMA
     Dosage: 12 MG, QD
     Route: 051
     Dates: start: 20170622, end: 20170623
  2. BELSOMRA [Concomitant]
     Active Substance: SUVOREXANT
     Indication: INSOMNIA
     Dosage: 20 MG, PRN
     Route: 048
     Dates: start: 20170618, end: 20170623
  3. KEYTRUDA [Suspect]
     Active Substance: PEMBROLIZUMAB
     Indication: LUNG ADENOCARCINOMA
     Dosage: 200 MG, Q3W
     Route: 041
     Dates: start: 20170525, end: 20170615
  4. DEXART [Concomitant]
     Active Substance: DEXAMETHASONE SODIUM PHOSPHATE
     Indication: LUNG ADENOCARCINOMA
     Dosage: 6.6 MG, QD
     Route: 051
     Dates: start: 20170605, end: 20170612
  5. DECADRON [Concomitant]
     Active Substance: DEXAMETHASONE
     Indication: LUNG ADENOCARCINOMA
     Dosage: 2.0 MG, QD
     Route: 048
     Dates: start: 20170613, end: 20170623

REACTIONS (2)
  - Insomnia [Recovered/Resolved]
  - Malignant neoplasm progression [Fatal]

NARRATIVE: CASE EVENT DATE: 20170618
